FAERS Safety Report 20130844 (Version 1)
Quarter: 2021Q4

REPORT INFORMATION
  Report Type: Spontaneous
  Country: US (occurrence: US)
  Receive Date: 20211130
  Receipt Date: 20211130
  Transmission Date: 20220303
  Serious: No
  Sender: FDA-Public Use
  Company Number: US-PERRIGO-21US010333

PATIENT
  Age: 51 Year
  Sex: Female
  Weight: 54.422 kg

DRUGS (1)
  1. NICOTINE POLACRILEX [Suspect]
     Active Substance: NICOTINE
     Indication: Smoking cessation therapy
     Dosage: 4 MG, PRN
     Route: 002
     Dates: start: 20210718, end: 20210719

REACTIONS (3)
  - Oral discomfort [Recovered/Resolved]
  - Dyspepsia [Recovered/Resolved]
  - Paraesthesia oral [Recovered/Resolved]

NARRATIVE: CASE EVENT DATE: 20210718
